FAERS Safety Report 10189700 (Version 2)
Quarter: 2014Q2

REPORT INFORMATION
  Report Type: Spontaneous
  Country: US (occurrence: US)
  Receive Date: 20140522
  Receipt Date: 20140522
  Transmission Date: 20141212
  Serious: Yes (Other)
  Sender: FDA-Public Use
  Company Number: US-SANOFI-AVENTIS-200914081US

PATIENT
  Age: 70 Year
  Sex: Female

DRUGS (4)
  1. LANTUS [Suspect]
     Indication: TYPE 2 DIABETES MELLITUS
     Dosage: DOSE:15 UNIT(S)
     Route: 058
     Dates: start: 2000
  2. LANTUS SOLOSTAR [Suspect]
     Indication: TYPE 2 DIABETES MELLITUS
     Route: 051
  3. HUMALOG [Concomitant]
     Dosage: DOSE AS USED: PER SLIDING SCALE WITH MEALS
  4. SOLOSTAR [Concomitant]

REACTIONS (5)
  - Hypoglycaemia [Recovered/Resolved]
  - Night sweats [Unknown]
  - Tremor [Unknown]
  - Incorrect product storage [Unknown]
  - Expired product administered [Unknown]
